FAERS Safety Report 8858472 (Version 1)
Quarter: 2012Q4

REPORT INFORMATION
  Report Type: 
  Country: BR (occurrence: BR)
  Receive Date: 20121025
  Receipt Date: 20121025
  Transmission Date: 20130627
  Serious: Yes (Other)
  Sender: FDA-Public Use
  Company Number: BR-AMGEN-BRASP2012019003

PATIENT
  Age: 53 Year
  Sex: Female
  Weight: 53 kg

DRUGS (3)
  1. ENBREL [Suspect]
     Indication: RHEUMATOID ARTHRITIS
     Dosage: 25 mg, 2x/week
     Route: 058
     Dates: start: 200812, end: 201110
  2. CAPTOPRIL [Concomitant]
     Dosage: 25 mg, daily
  3. PREDNISONE [Concomitant]
     Dosage: 5 mg, 2x/day

REACTIONS (2)
  - Inflammation [Unknown]
  - Device related infection [Unknown]
